FAERS Safety Report 7736090-8 (Version None)
Quarter: 2011Q3

REPORT INFORMATION
  Report Type: 
  Country: None (occurrence: None)
  Receive Date: 20110902
  Receipt Date: 20110823
  Transmission Date: 20111222
  Serious: Yes (Hospitalization)
  Sender: FDA-Public Use
  Company Number: 1023557

PATIENT
  Age: 19 Year
  Sex: Male

DRUGS (9)
  1. BUDESONIDE [Suspect]
     Indication: CHRONIC GRAFT VERSUS HOST DISEASE
  2. CYCLOPHOSPHAMIDE [Suspect]
     Indication: CHRONIC GRAFT VERSUS HOST DISEASE
  3. CYCLOSPORINE [Suspect]
     Indication: CHRONIC GRAFT VERSUS HOST DISEASE
  4. (OTHER CHEMOTHERAPEUTICS) [Suspect]
     Indication: CHRONIC GRAFT VERSUS HOST DISEASE
  5. METHOTREXATE [Suspect]
     Indication: CHRONIC GRAFT VERSUS HOST DISEASE
  6. (CORTICOSTEROIDS) [Suspect]
     Indication: CHRONIC GRAFT VERSUS HOST DISEASE
  7. (RITUXIMAB) [Suspect]
     Indication: CHRONIC GRAFT VERSUS HOST DISEASE
  8. IMATINIB MESYLATE [Suspect]
     Indication: CHRONIC GRAFT VERSUS HOST DISEASE
  9. MYCOPHENOLATE MOFETIL [Suspect]
     Indication: CHRONIC GRAFT VERSUS HOST DISEASE

REACTIONS (5)
  - PANIC ATTACK [None]
  - CATARACT [None]
  - CEREBRAL ATROPHY [None]
  - PROGRESSIVE MULTIFOCAL LEUKOENCEPHALOPATHY [None]
  - JC VIRUS INFECTION [None]
